FAERS Safety Report 16113036 (Version 1)
Quarter: 2019Q1

REPORT INFORMATION
  Report Type: Spontaneous
  Country: US (occurrence: US)
  Receive Date: 20190325
  Receipt Date: 20190325
  Transmission Date: 20190418
  Serious: No
  Sender: FDA-Public Use
  Company Number: US-MISSION PHARMACAL COMPANY-2064515

PATIENT
  Age: 15 Year
  Sex: Female

DRUGS (1)
  1. THIOLA [Suspect]
     Active Substance: TIOPRONIN
     Indication: CYSTINURIA
     Route: 048
     Dates: start: 20190309

REACTIONS (7)
  - Rash [Unknown]
  - Renal pain [Unknown]
  - Urticaria [Unknown]
  - Drug ineffective [Unknown]
  - Pyrexia [Unknown]
  - Vomiting [Unknown]
  - Swelling face [Unknown]
